FAERS Safety Report 9157624 (Version 1)
Quarter: 2013Q1

REPORT INFORMATION
  Report Type: Report from Study
  Country: US (occurrence: US)
  Receive Date: 20130312
  Receipt Date: 20130312
  Transmission Date: 20140127
  Serious: Yes (Other)
  Sender: FDA-Public Use
  Company Number: US-BAYER-2013-029512

PATIENT
  Age: 51 Year
  Sex: Female

DRUGS (1)
  1. BETASERON [Suspect]
     Indication: MULTIPLE SCLEROSIS
     Dosage: 8 MIU, UNK
     Dates: start: 20130302, end: 20130304

REACTIONS (3)
  - Abasia [Recovered/Resolved]
  - Faecal incontinence [Recovered/Resolved]
  - Incorrect dose administered [Recovered/Resolved]
